FAERS Safety Report 22386580 (Version 2)
Quarter: 2023Q2

REPORT INFORMATION
  Report Type: Report from Study
  Country: GR (occurrence: GR)
  Receive Date: 20230531
  Receipt Date: 20230601
  Transmission Date: 20230722
  Serious: Yes (Other)
  Sender: FDA-Public Use
  Company Number: GR-ABBVIE-4771040

PATIENT
  Age: 64 Year
  Sex: Female

DRUGS (3)
  1. CARBIDOPA\LEVODOPA [Suspect]
     Active Substance: CARBIDOPA\LEVODOPA
     Indication: Parkinson^s disease
     Dosage: MORNING DOSE: 6.8 ML; CONTINUOUS RATE: 3.8 ML/H; EXTRA DOSE: 1.8 ML
     Route: 050
     Dates: start: 20190221
  2. CARBIDOPA\LEVODOPA [Suspect]
     Active Substance: CARBIDOPA\LEVODOPA
  3. fludrocortisone (Cortineff) [Concomitant]
     Indication: Orthostatic hypotension
     Route: 048

REACTIONS (9)
  - Loss of consciousness [Recovered/Resolved]
  - Skin hypertrophy [Recovered/Resolved]
  - Abdominal pain upper [Not Recovered/Not Resolved]
  - Dizziness [Recovered/Resolved]
  - Hypotension [Unknown]
  - Abdominal distension [Not Recovered/Not Resolved]
  - Product quality issue [Unknown]
  - Dizziness [Recovered/Resolved]
  - Dehydration [Unknown]

NARRATIVE: CASE EVENT DATE: 20221101
